FAERS Safety Report 13267663 (Version 12)
Quarter: 2018Q2

REPORT INFORMATION
  Report Type: Spontaneous
  Country: US (occurrence: US)
  Receive Date: 20170224
  Receipt Date: 20180502
  Transmission Date: 20180711
  Serious: Yes (Hospitalization)
  Sender: FDA-Public Use
  Company Number: US-PFIZER INC-2017083446

PATIENT
  Age: 62 Year
  Sex: Female
  Weight: 101.1 kg

DRUGS (55)
  1. LYRICA [Suspect]
     Active Substance: PREGABALIN
     Indication: NEURALGIA
     Dosage: 150 MG, DAILY (1 TAB AT 10 PM)
  2. SKELAXIN [Suspect]
     Active Substance: METAXALONE
     Dosage: UNK
     Dates: start: 2006
  3. WELLBUTRIN [Concomitant]
     Active Substance: BUPROPION HYDROCHLORIDE
     Dosage: 300 MG, DAILY
     Dates: start: 2016
  4. CALCIUM [Concomitant]
     Active Substance: CALCIUM
     Dosage: 500 MG, DAILY
  5. CETIRIZINE HCL [Concomitant]
     Active Substance: CETIRIZINE HYDROCHLORIDE
     Dosage: 10 MG, DAILY
  6. CYMBALTA [Concomitant]
     Active Substance: DULOXETINE HYDROCHLORIDE
     Dosage: 30 MG, DAILY
  7. VALTREX [Concomitant]
     Active Substance: VALACYCLOVIR HYDROCHLORIDE
     Dosage: 1 DF, UNK(1 TAB X 5 A DAY = 2)
  8. SYNTHROID [Concomitant]
     Active Substance: LEVOTHYROXINE SODIUM
     Indication: THYROID DISORDER
     Dosage: 75 UG, 1X/DAY
  9. FLUTICASONE. [Concomitant]
     Active Substance: FLUTICASONE
     Dosage: UNK
  10. DOXYCYCLINE. [Concomitant]
     Active Substance: DOXYCYCLINE
     Dosage: UNK
  11. OSTEO BI-FLEX [Concomitant]
     Active Substance: CHONDROITIN SULFATE A\GLUCOSAMINE
     Dosage: UNK
  12. FENTANYL. [Concomitant]
     Active Substance: FENTANYL
     Dosage: UNK (75 PATCH ON ARM AND CHANGE EVERY 3 DAYS)
  13. LYRICA [Suspect]
     Active Substance: PREGABALIN
     Dosage: 100 MG, 2X/DAY
  14. VITAMIN B1 [Concomitant]
     Active Substance: THIAMINE HYDROCHLORIDE
     Dosage: 100 MG, DAILY
  15. VITAMIN B12 [Concomitant]
     Active Substance: CYANOCOBALAMIN
     Dosage: 500 UG, DAILY
  16. ELMIRON [Concomitant]
     Active Substance: PENTOSAN POLYSULFATE SODIUM
     Indication: CYSTITIS
     Dosage: 100 MG, 2X/DAY
     Dates: end: 20180104
  17. AMLODIPINE [Concomitant]
     Active Substance: AMLODIPINE BESYLATE
     Dosage: 10 MG, 1X/DAY
  18. LYRICA [Suspect]
     Active Substance: PREGABALIN
     Dosage: 100 MG, 2X/DAY (MORNING ABOUT 8 O CLOCK AND THEN 3:30 OR 4 PM)
     Route: 048
  19. PREMARIN [Suspect]
     Active Substance: ESTROGENS, CONJUGATED
     Dosage: UNK
     Route: 067
  20. CLONAZEPAM. [Concomitant]
     Active Substance: CLONAZEPAM
     Dosage: 1 MG, 3X/DAY
     Dates: start: 1992
  21. METHADONE [Concomitant]
     Active Substance: METHADONE HYDROCHLORIDE
     Dosage: 10 MG, 3X/DAY
     Dates: start: 2016
  22. PROMETHAZINE [Concomitant]
     Active Substance: PROMETHAZINE\PROMETHAZINE HYDROCHLORIDE
     Indication: VOMITING
     Dosage: 12.5 MG, UNK (WHEN NEEDED )
  23. LYRICA [Suspect]
     Active Substance: PREGABALIN
     Indication: NERVE INJURY
     Dosage: 100 MG, 2X/DAY (1 TAB AT 9 AM AND 3:30 PM)
     Route: 048
  24. OMEGA 3 [Concomitant]
     Active Substance: OMEGA-3 FATTY ACIDS
     Dosage: 2 G, 2X/DAY (1G, 2 CAP 2X/DAY)
     Dates: start: 2005
  25. NORVASC [Concomitant]
     Active Substance: AMLODIPINE BESYLATE
     Dosage: 10 MG, DAILY
  26. HCTZ [Concomitant]
     Active Substance: HYDROCHLOROTHIAZIDE
     Dosage: 25 MG, DAILY
  27. CENTRUM SILVER [Concomitant]
     Active Substance: MINERALS\VITAMINS
     Dosage: 1 DF, 1X/DAY
  28. TRAZODONE [Concomitant]
     Active Substance: TRAZODONE HYDROCHLORIDE
     Dosage: 100 MG, DAILY
  29. FUROSEMIDE. [Concomitant]
     Active Substance: FUROSEMIDE
     Indication: LIMB DISCOMFORT
     Dosage: UNK
  30. LYRICA [Suspect]
     Active Substance: PREGABALIN
     Indication: PAIN IN EXTREMITY
     Dosage: 100 MG, 2X/DAY (ONE IN THE MORNING AND ONE IN THE NIGHT)
     Route: 048
     Dates: start: 2009
  31. LYRICA [Suspect]
     Active Substance: PREGABALIN
     Indication: NEUROPATHY PERIPHERAL
     Dosage: 100 MG, 2X/DAY
     Dates: start: 2009
  32. LASIX [Concomitant]
     Active Substance: FUROSEMIDE
     Indication: CARDIAC DISORDER
     Dosage: UNK
     Dates: start: 2017
  33. MOBIC [Concomitant]
     Active Substance: MELOXICAM
     Dosage: 15 MG, DAILY
     Dates: start: 2016
  34. LIDOCAINE. [Concomitant]
     Active Substance: LIDOCAINE
     Dosage: UNK (SHE KEEPS 12 HOURS ON AND 12 HOURS OFF. APPLIES TO BACK)
     Route: 061
  35. DICYCLOMINE [Concomitant]
     Active Substance: DICYCLOMINE HYDROCHLORIDE
     Indication: PAIN
  36. LYRICA [Suspect]
     Active Substance: PREGABALIN
     Dosage: 100 MG, 2X/DAY
     Route: 048
  37. SKELAXIN [Suspect]
     Active Substance: METAXALONE
     Indication: MUSCLE SPASMS
     Dosage: 800 MG, 3X/DAY
     Route: 048
     Dates: start: 2003
  38. PRILOSEC [Concomitant]
     Active Substance: OMEPRAZOLE MAGNESIUM
     Indication: GASTROOESOPHAGEAL REFLUX DISEASE
     Dosage: 200 MG, DAILY
     Dates: start: 2014
  39. VITAMIN D [Concomitant]
     Active Substance: CHOLECALCIFEROL
     Dosage: 50000 IU, WEEKLY (1 CAP ON WEDNESDAY)
     Dates: start: 2005
  40. LIPITOR [Concomitant]
     Active Substance: ATORVASTATIN CALCIUM
     Dosage: 40 MG, DAILY
  41. BACTRIM [Concomitant]
     Active Substance: SULFAMETHOXAZOLE\TRIMETHOPRIM
     Dosage: 1 DF, UNK ((800 /160 1 TAB X 5 A DAY=2)
  42. FUROSEMIDE. [Concomitant]
     Active Substance: FUROSEMIDE
     Indication: JOINT SWELLING
  43. DICYCLOMINE [Concomitant]
     Active Substance: DICYCLOMINE HYDROCHLORIDE
     Indication: VOMITING
     Dosage: 10 MG, UNK (WHEN NEEDED)
  44. PROMETHAZINE [Concomitant]
     Active Substance: PROMETHAZINE\PROMETHAZINE HYDROCHLORIDE
     Indication: PAIN
  45. ESTRACE [Concomitant]
     Active Substance: ESTRADIOL
     Dosage: UNK (OCCASIONALLY)
  46. LYRICA [Suspect]
     Active Substance: PREGABALIN
     Dosage: 1 DF, 2X/DAY (ONE IN THE MORNING AND ONE IN THE NIGHT)
     Dates: start: 20170228
  47. FUROSEMIDE. [Concomitant]
     Active Substance: FUROSEMIDE
     Indication: LIMB DISCOMFORT
  48. PERCOCET [Concomitant]
     Active Substance: ACETAMINOPHEN\OXYCODONE HYDROCHLORIDE
     Dosage: UNK
  49. L-THYROXINE [Concomitant]
     Active Substance: LEVOTHYROXINE
     Dosage: 75 UG, DAILY
  50. CYMBALTA [Concomitant]
     Active Substance: DULOXETINE HYDROCHLORIDE
     Indication: FIBROMYALGIA
     Dosage: 60 MG, DAILY
  51. LIDOCAINE. [Concomitant]
     Active Substance: LIDOCAINE
     Dosage: UNK, DAILY (2-3)
  52. SINGULAIR [Concomitant]
     Active Substance: MONTELUKAST SODIUM
     Dosage: 1 DF, DAILY
  53. DICLON [Concomitant]
     Active Substance: DICLOFENAC SODIUM
     Dosage: UNK
  54. PYRIDIUM [Concomitant]
     Active Substance: PHENAZOPYRIDINE
     Indication: CYSTITIS
     Dosage: UNK
  55. TURMERIC [Concomitant]
     Active Substance: HERBALS\TURMERIC
     Dosage: UNK

REACTIONS (15)
  - Drug ineffective [Not Recovered/Not Resolved]
  - Influenza [Recovering/Resolving]
  - Gait disturbance [Unknown]
  - Eye pain [Unknown]
  - Malaise [Unknown]
  - Blister [Not Recovered/Not Resolved]
  - Back pain [Unknown]
  - Condition aggravated [Unknown]
  - Spinal pain [Unknown]
  - Pneumonia [Recovering/Resolving]
  - Pain [Not Recovered/Not Resolved]
  - Peripheral swelling [Not Recovered/Not Resolved]
  - Erythema [Not Recovered/Not Resolved]
  - Body height decreased [Not Recovered/Not Resolved]
  - Neuralgia [Unknown]

NARRATIVE: CASE EVENT DATE: 20150301
